FAERS Safety Report 10287402 (Version 2)
Quarter: 2014Q4

REPORT INFORMATION
  Report Type: Spontaneous
  Country: US (occurrence: US)
  Receive Date: 20140709
  Receipt Date: 20141203
  Transmission Date: 20150528
  Serious: No
  Sender: FDA-Public Use
  Company Number: US-PFIZER INC-2014187767

PATIENT
  Age: 54 Year
  Sex: Male
  Weight: 84.81 kg

DRUGS (4)
  1. OXYCODONE [Concomitant]
     Active Substance: OXYCODONE
     Indication: BACK PAIN
     Dosage: UNK
  2. LYRICA [Suspect]
     Active Substance: PREGABALIN
     Indication: BURNING SENSATION
     Dosage: 75 MG, 2X/DAY
     Route: 048
     Dates: start: 20140515
  3. METFORMIN [Concomitant]
     Active Substance: METFORMIN HYDROCHLORIDE
     Indication: DIABETES MELLITUS
     Dosage: UNK
  4. LYRICA [Suspect]
     Active Substance: PREGABALIN
     Indication: DIABETIC NEUROPATHY
     Dosage: 75 MG, 2X/DAY
     Route: 048
     Dates: start: 201101

REACTIONS (5)
  - Diabetic neuropathy [Unknown]
  - Drug tolerance increased [Recovered/Resolved]
  - Burning sensation [Unknown]
  - Accident [Unknown]
  - Drug ineffective [Recovered/Resolved]

NARRATIVE: CASE EVENT DATE: 2014
